FAERS Safety Report 21328017 (Version 2)
Quarter: 2022Q4

REPORT INFORMATION
  Report Type: Spontaneous
  Country: US (occurrence: US)
  Receive Date: 20220913
  Receipt Date: 20221025
  Transmission Date: 20230113
  Serious: No
  Sender: FDA-Public Use
  Company Number: US-SA-SAC20220907001369

PATIENT
  Sex: Female
  Weight: 71.6 kg

DRUGS (17)
  1. DUPIXENT [Suspect]
     Active Substance: DUPILUMAB
     Indication: Dermatitis atopic
     Dosage: 300 MG, QOW
     Route: 058
  2. NALTREXONE HYDROCHLORIDE [Concomitant]
     Active Substance: NALTREXONE HYDROCHLORIDE
  3. CEPHALEXIN [Concomitant]
     Active Substance: CEPHALEXIN
  4. CEPHALEXIN [Concomitant]
     Active Substance: CEPHALEXIN
  5. GRAPESEED [Concomitant]
  6. CURCUMIN [Concomitant]
     Active Substance: CURCUMIN
  7. CURCUMIN [Concomitant]
     Active Substance: CURCUMIN
  8. ZYRTEC [Concomitant]
     Active Substance: CETIRIZINE HYDROCHLORIDE
  9. ZYRTEC [Concomitant]
     Active Substance: CETIRIZINE HYDROCHLORIDE
  10. TYLENOL [Concomitant]
     Active Substance: ACETAMINOPHEN
  11. TYLENOL [Concomitant]
     Active Substance: ACETAMINOPHEN
  12. CYCLOSPORINE [Concomitant]
     Active Substance: CYCLOSPORINE
  13. CYCLOSPORINE [Concomitant]
     Active Substance: CYCLOSPORINE
  14. FISH OIL [Concomitant]
     Active Substance: FISH OIL
  15. PROBIOTICS NOS [Concomitant]
     Active Substance: PROBIOTICS NOS
     Dosage: 10B CELL CAPSULE
  16. PROBIOTIC 10 [BIFIDOBACTERIUM BIFIDUM;BIFIDOBACTERIUM LACTIS;LACTOBACI [Concomitant]
  17. GRAPE SEED [VITIS VINIFERA SEED] [Concomitant]

REACTIONS (6)
  - Dermatitis atopic [Unknown]
  - Rash [Unknown]
  - Eczema [Unknown]
  - Urticaria [Unknown]
  - Off label use [Unknown]
  - Drug effect less than expected [Unknown]
